FAERS Safety Report 6765489-1 (Version None)
Quarter: 2010Q2

REPORT INFORMATION
  Report Type: 
  Country: None (occurrence: None)
  Receive Date: 20100611
  Receipt Date: 20100608
  Transmission Date: 20101027
  Serious: Yes (Death, Other)
  Sender: FDA-Public Use
  Company Number: PHHY2010US26807

PATIENT
  Sex: Female
  Weight: 77.551 kg

DRUGS (14)
  1. EXJADE [Suspect]
     Indication: TRANSFUSION
     Dosage: 2750 MG, QD
     Route: 048
     Dates: start: 20070416
  2. COUMADIN [Concomitant]
  3. FLUNASE [Concomitant]
  4. HUMALOG [Concomitant]
  5. LEVEMIR [Concomitant]
  6. LEVOTHYROXINE SODIUM [Concomitant]
  7. LIPITOR [Concomitant]
  8. MICRO-K [Concomitant]
  9. SINGULAIR [Concomitant]
  10. SYMBICORT [Concomitant]
  11. OXYCODONE [Concomitant]
  12. PREDNESOL [Concomitant]
  13. PRILOSEC [Concomitant]
  14. REVATIO [Concomitant]

REACTIONS (2)
  - DEATH [None]
  - PULMONARY HYPERTENSION [None]
